FAERS Safety Report 6552308-1 (Version None)
Quarter: 2010Q1

REPORT INFORMATION
  Report Type: 
  Country: None (occurrence: None)
  Receive Date: 20100126
  Receipt Date: 20100115
  Transmission Date: 20100710
  Serious: Yes (Hospitalization, Other)
  Sender: FDA-Public Use
  Company Number: US-BAXTER-2010BH001157

PATIENT
  Sex: Female

DRUGS (1)
  1. HEPARIN SODIUM INJECTION [Suspect]
     Indication: DRUG USE FOR UNKNOWN INDICATION
     Route: 065
     Dates: start: 20071101

REACTIONS (13)
  - ABDOMINAL PAIN [None]
  - BLOOD PRESSURE DECREASED [None]
  - CARDIAC DISORDER [None]
  - CHEST PAIN [None]
  - CHILLS [None]
  - DIARRHOEA [None]
  - FATIGUE [None]
  - HYPERHIDROSIS [None]
  - NAUSEA [None]
  - PHARYNGEAL OEDEMA [None]
  - RASH [None]
  - SHOCK [None]
  - SYNCOPE [None]
